FAERS Safety Report 7931727-2 (Version None)
Quarter: 2011Q4

REPORT INFORMATION
  Report Type: 
  Country: None (occurrence: None)
  Receive Date: 20111121
  Receipt Date: 20111115
  Transmission Date: 20120403
  Serious: Yes (Other)
  Sender: FDA-Public Use
  Company Number: PHHY2011DE100926

PATIENT
  Sex: Male

DRUGS (3)
  1. CERTICAN [Suspect]
     Indication: PROPHYLAXIS AGAINST TRANSPLANT REJECTION
     Route: 048
  2. CYCLOSPORINE [Suspect]
     Indication: PROPHYLAXIS AGAINST TRANSPLANT REJECTION
     Route: 048
  3. PREDNISOLONE [Concomitant]
     Indication: PROPHYLAXIS AGAINST TRANSPLANT REJECTION
     Route: 048

REACTIONS (1)
  - PERIPHERAL ARTERIAL OCCLUSIVE DISEASE [None]
